FAERS Safety Report 10640250 (Version 2)
Quarter: 2015Q1

REPORT INFORMATION
  Report Type: Report from Study
  Country: US (occurrence: US)
  Receive Date: 20141209
  Receipt Date: 20150112
  Transmission Date: 20150720
  Serious: Yes (Other)
  Sender: FDA-Public Use
  Company Number: US-JNJFOC-20141203389

PATIENT
  Age: 67 Year
  Sex: Female

DRUGS (17)
  1. METFORMIN [Concomitant]
     Active Substance: METFORMIN HYDROCHLORIDE
     Route: 065
  2. DESOXIMETASONE. [Concomitant]
     Active Substance: DESOXIMETASONE
     Route: 065
  3. LINOPRIL [Concomitant]
     Route: 065
  4. AMLODIPINE BESYLATE. [Concomitant]
     Active Substance: AMLODIPINE BESYLATE
     Route: 065
  5. ATORVASTATIN [Concomitant]
     Active Substance: ATORVASTATIN
     Route: 065
  6. ALLEGRA [Concomitant]
     Active Substance: FEXOFENADINE HYDROCHLORIDE
     Route: 065
  7. FUROSEMIDE. [Concomitant]
     Active Substance: FUROSEMIDE
     Route: 065
  8. VITAMN B-COMPLEX WITH VITAMIN C [Concomitant]
     Route: 065
  9. OMEPRAZOLE. [Concomitant]
     Active Substance: OMEPRAZOLE
     Route: 065
  10. HUMINSULIN R [Concomitant]
     Dosage: 35 UNITS IN MORNING, NOON AND NIGHT
     Route: 065
  11. ASPIRIN. [Concomitant]
     Active Substance: ASPIRIN
     Route: 065
  12. VITAMIN D3 [Concomitant]
     Active Substance: CHOLECALCIFEROL
     Route: 065
  13. SERTRALINE [Concomitant]
     Active Substance: SERTRALINE HYDROCHLORIDE
     Route: 065
  14. REMICADE [Suspect]
     Active Substance: INFLIXIMAB
     Indication: PSORIATIC ARTHROPATHY
     Dosage: POSSIBLY 6 VIALS
     Route: 042
     Dates: start: 20110426, end: 20141210
  15. CLONIDINE. [Concomitant]
     Active Substance: CLONIDINE
     Dosage: 0.2 MAG
     Route: 065
  16. HUMINSULIN N [Concomitant]
     Dosage: 65 UNITS IN MORNING, NOON AND NIGHT
     Route: 065
  17. KLOR CON [Concomitant]
     Route: 065

REACTIONS (4)
  - Renal cancer [Recovering/Resolving]
  - Cerebrovascular accident [Unknown]
  - Drug ineffective [Unknown]
  - Large intestine polyp [Unknown]

NARRATIVE: CASE EVENT DATE: 20140328
